FAERS Safety Report 4318978-3 (Version None)
Quarter: 2004Q1

REPORT INFORMATION
  Report Type: 
  Country: None (occurrence: None)
  Receive Date: 20040316
  Receipt Date: 20040302
  Transmission Date: 20041129
  Serious: Yes (Hospitalization)
  Sender: FDA-Public Use
  Company Number: FR-JNJFOC-20040301203

PATIENT
  Sex: Female

DRUGS (1)
  1. REMINYL [Suspect]
     Indication: ADVERSE EVENT
     Dosage: 4 MG, 2 IN 1 DAY, ORAL
     Route: 048
     Dates: start: 20040128, end: 20040213

REACTIONS (1)
  - CYTOLYTIC HEPATITIS [None]
